FAERS Safety Report 7491685 (Version 3)
Quarter: 2014Q1

REPORT INFORMATION
  Report Type: Spontaneous
  Country: US (occurrence: US)
  Receive Date: 20100721
  Receipt Date: 20140129
  Transmission Date: 20141002
  Serious: Yes (Other)
  Sender: FDA-Public Use
  Company Number: US-BAYER-201028197NA

PATIENT
  Age: 17 Year
  Sex: Female
  Weight: 54 kg

DRUGS (18)
  1. YAZ [Suspect]
     Indication: ORAL CONTRACEPTION
     Dosage: UNK UNK, UNK
     Route: 048
     Dates: start: 200711, end: 200901
  2. YAZ [Suspect]
     Indication: ACNE
  3. YAZ [Suspect]
     Indication: PREMENSTRUAL DYSPHORIC DISORDER
  4. OCELLA [Suspect]
     Indication: ORAL CONTRACEPTION
     Dosage: UNK UNK, UNK
     Route: 048
     Dates: start: 200904, end: 200909
  5. OCELLA [Suspect]
     Indication: ACNE
  6. OCELLA [Suspect]
     Indication: PREMENSTRUAL DYSPHORIC DISORDER
  7. YASMIN [Suspect]
     Indication: ORAL CONTRACEPTION
     Dosage: UNK
     Route: 048
  8. YASMIN [Suspect]
     Indication: ACNE
  9. YASMIN [Suspect]
     Indication: PREMENSTRUAL DYSPHORIC DISORDER
  10. PREVACID [Concomitant]
     Indication: GASTRITIS
     Dosage: 30 MG, QD
     Route: 048
  11. ZOLOFT [Concomitant]
     Indication: DEPRESSION
     Dosage: 50 MG, QD
  12. ZYRTEC [Concomitant]
     Indication: MULTIPLE ALLERGIES
     Dosage: 10 MG, QD
     Route: 048
  13. ZOFRAN [Concomitant]
     Indication: NAUSEA
     Dosage: 4 MG, TID
  14. TRI-SPRINTEC [Concomitant]
     Indication: CONTRACEPTION
     Dosage: UNK
     Dates: start: 200902, end: 200903
  15. APRI [Concomitant]
     Indication: CONTRACEPTION
     Dosage: UNK
     Dates: start: 200909, end: 200911
  16. SPRINTEC [Concomitant]
  17. NITROFURANTOIN [Concomitant]
     Dosage: 100 MG, UNK
  18. PRILOSEC [Concomitant]

REACTIONS (11)
  - Gallbladder disorder [Unknown]
  - Pancreatitis [None]
  - Biliary dyskinesia [None]
  - Flank pain [None]
  - Diabetes mellitus [None]
  - Anaemia [None]
  - Diarrhoea [Unknown]
  - Nausea [Unknown]
  - Vomiting [Unknown]
  - Abdominal pain [Unknown]
  - Abdominal pain upper [Unknown]
